FAERS Safety Report 4865993-7 (Version None)
Quarter: 2005Q4

REPORT INFORMATION
  Report Type: 
  Country: None (occurrence: None)
  Receive Date: 20051221
  Receipt Date: 20051205
  Transmission Date: 20060501
  Serious: Yes (Life-Threatening, Hospitalization)
  Sender: FDA-Public Use
  Company Number: 200513866GDS

PATIENT
  Sex: Male

DRUGS (3)
  1. AVELOX [Suspect]
     Indication: PNEUMONIA
     Dates: start: 20050801, end: 20051118
  2. CLOZARIL [Concomitant]
  3. SLEEPING MEDICATION [Concomitant]

REACTIONS (8)
  - APHASIA [None]
  - ASCITES [None]
  - ASTHENIA [None]
  - CONDITION AGGRAVATED [None]
  - LIVER DISORDER [None]
  - PNEUMONIA [None]
  - RASH MORBILLIFORM [None]
  - SPEECH DISORDER [None]
